FAERS Safety Report 5242315-3 (Version None)
Quarter: 2007Q1

REPORT INFORMATION
  Report Type: 
  Country: None (occurrence: None)
  Receive Date: 20070216
  Receipt Date: 20070216
  Transmission Date: 20070707
  Serious: Yes (Hospitalization)
  Sender: FDA-Public Use
  Company Number: None

PATIENT
  Age: 78 Year
  Sex: Male

DRUGS (2)
  1. NIFEDIPINE [Suspect]
     Indication: HYPERTENSION
     Dosage: 90MG QD
     Dates: start: 20060530
  2. LORTAB [Suspect]
     Indication: PAIN
     Dosage: 5/500 Q6H PRN
     Dates: start: 20060530

REACTIONS (1)
  - LOSS OF CONSCIOUSNESS [None]
